FAERS Safety Report 24232438 (Version 2)
Quarter: 2024Q4

REPORT INFORMATION
  Report Type: Report from Study
  Country: CA (occurrence: CA)
  Receive Date: 20240821
  Receipt Date: 20241014
  Transmission Date: 20250115
  Serious: Yes (Other)
  Sender: JOHNSON AND JOHNSON
  Company Number: CA-JNJFOC-20240703374

PATIENT
  Age: 59 Year
  Sex: Female
  Weight: 86 kg

DRUGS (3)
  1. REMICADE [Suspect]
     Active Substance: INFLIXIMAB
     Indication: Crohn^s disease
     Route: 041
     Dates: start: 20130225
  2. REMICADE [Suspect]
     Active Substance: INFLIXIMAB
     Route: 041
     Dates: start: 20130225
  3. REMICADE [Suspect]
     Active Substance: INFLIXIMAB
     Dosage: LESS THAN 5MG/KG
     Route: 041

REACTIONS (7)
  - Neoplasm malignant [Unknown]
  - Nephrolithiasis [Unknown]
  - Hepatic lesion [Unknown]
  - Renal disorder [Unknown]
  - Ovarian cyst [Unknown]
  - Weight increased [Not Recovered/Not Resolved]
  - Off label use [Unknown]

NARRATIVE: CASE EVENT DATE: 20240531
